FAERS Safety Report 5272196-3 (Version None)
Quarter: 2007Q1

REPORT INFORMATION
  Report Type: 
  Country: None (occurrence: None)
  Receive Date: 20070320
  Receipt Date: 20070320
  Transmission Date: 20070707
  Serious: Yes (Hospitalization)
  Sender: FDA-Public Use
  Company Number: None

PATIENT
  Age: 71 Year
  Sex: Female
  Weight: 80.7403 kg

DRUGS (3)
  1. MEGACE [Suspect]
     Indication: WEIGHT DECREASED
     Dosage: 20ML PO QD
     Route: 048
     Dates: start: 20070209, end: 20070224
  2. FENTANYL [Concomitant]
  3. PROCHLORPERAZINE [Concomitant]

REACTIONS (3)
  - CHRONIC OBSTRUCTIVE PULMONARY DISEASE [None]
  - CONDITION AGGRAVATED [None]
  - DYSPHAGIA [None]
